FAERS Safety Report 22315225 (Version 1)
Quarter: 2023Q2

REPORT INFORMATION
  Report Type: Spontaneous
  Country: US (occurrence: None)
  Receive Date: 20230511
  Receipt Date: 20230511
  Transmission Date: 20230721
  Serious: Yes (Other)
  Sender: FDA-Public Use
  Company Number: None

PATIENT
  Age: 43 Year
  Sex: Female

DRUGS (1)
  1. CANNABIDIOL\HERBALS [Suspect]
     Active Substance: CANNABIDIOL\HERBALS

REACTIONS (5)
  - Overdose [None]
  - Lethargy [None]
  - Unresponsive to stimuli [None]
  - Hyperhidrosis [None]
  - Mobility decreased [None]

NARRATIVE: CASE EVENT DATE: 20230507
